FAERS Safety Report 5100640-0 (Version None)
Quarter: 2006Q3

REPORT INFORMATION
  Report Type: 
  Country: None (occurrence: None)
  Receive Date: 20060906
  Receipt Date: 20060823
  Transmission Date: 20061208
  Serious: No
  Sender: FDA-Public Use
  Company Number: TPA2006A01417

PATIENT
  Age: 44 Year
  Sex: Female
  Weight: 52.1637 kg

DRUGS (3)
  1. ROZEREM [Suspect]
     Indication: INSOMNIA
     Dosage: 8 MG, QHS, PER ORAL' 8 MG, 8 MG, 1-2 TAB, QHS, PER ORAL
     Route: 048
     Dates: start: 20060823
  2. ROZEREM [Suspect]
     Indication: INSOMNIA
     Dosage: 8 MG, QHS, PER ORAL' 8 MG, 8 MG, 1-2 TAB, QHS, PER ORAL
     Route: 048
     Dates: start: 20060823
  3. PAK (AZITHROMYCIN) [Concomitant]

REACTIONS (1)
  - DRUG INEFFECTIVE [None]
